FAERS Safety Report 26082615 (Version 1)
Quarter: 2025Q4

REPORT INFORMATION
  Report Type: Spontaneous
  Country: US (occurrence: US)
  Receive Date: 20251124
  Receipt Date: 20251124
  Transmission Date: 20260117
  Serious: Yes (Hospitalization)
  Sender: MYLAN
  Company Number: US-MYLANLABS-2025M1098782

PATIENT
  Age: 6 Year
  Sex: Male

DRUGS (1)
  1. ZOLEDRONIC ACID [Suspect]
     Active Substance: ZOLEDRONIC ACID
     Indication: Osteogenesis imperfecta
     Dosage: 10 MILLIGRAM, INFUSION

REACTIONS (8)
  - Abdominal pain [Unknown]
  - Nausea [Unknown]
  - Bone pain [Unknown]
  - Sinus tachycardia [Unknown]
  - Hypophosphataemia [Recovering/Resolving]
  - Accidental overdose [Recovering/Resolving]
  - Incorrect dose administered [Unknown]
  - Off label use [Unknown]
